FAERS Safety Report 23229531 (Version 3)
Quarter: 2024Q2

REPORT INFORMATION
  Report Type: Report from Study
  Country: US (occurrence: US)
  Receive Date: 20231127
  Receipt Date: 20240516
  Transmission Date: 20240716
  Serious: Yes (Hospitalization, Other)
  Sender: FDA-Public Use
  Company Number: US-UCBSA-2023029317

PATIENT
  Sex: Male

DRUGS (2)
  1. ROTIGOTINE [Suspect]
     Active Substance: ROTIGOTINE
     Indication: Parkinson^s disease
     Dosage: 6 MILLIGRAM, ONCE DAILY (QD)
     Route: 062
     Dates: start: 202306
  2. ROTIGOTINE [Suspect]
     Active Substance: ROTIGOTINE
     Indication: Restless legs syndrome

REACTIONS (9)
  - Clostridium difficile infection [Recovered/Resolved]
  - Kidney infection [Not Recovered/Not Resolved]
  - Sepsis [Not Recovered/Not Resolved]
  - Thrombosis [Not Recovered/Not Resolved]
  - Brain oedema [Not Recovered/Not Resolved]
  - Oedema peripheral [Not Recovered/Not Resolved]
  - Movement disorder [Not Recovered/Not Resolved]
  - Wrong technique in product usage process [Unknown]
  - Product use issue [Unknown]

NARRATIVE: CASE EVENT DATE: 20230101
